FAERS Safety Report 6656847-4 (Version None)
Quarter: 2010Q1

REPORT INFORMATION
  Report Type: 
  Country: None (occurrence: None)
  Receive Date: 20100325
  Receipt Date: 20100312
  Transmission Date: 20100710
  Serious: Yes (Other)
  Sender: FDA-Public Use
  Company Number: US-1181238

PATIENT
  Sex: Female

DRUGS (9)
  1. TRAVATAN [Suspect]
     Indication: INTRAOCULAR PRESSURE TEST
     Dosage: OPHTHALMIC
     Route: 047
     Dates: start: 20100120
  2. LASIX [Concomitant]
  3. CELEBREX [Concomitant]
  4. NEXIUM [Concomitant]
  5. ACTOS [Concomitant]
  6. INSULIN [Concomitant]
  7. SYNTHROID [Concomitant]
  8. CARVEDILOL [Concomitant]
  9. WARFARIN [Concomitant]

REACTIONS (1)
  - BLOOD GLUCOSE INCREASED [None]
